FAERS Safety Report 4390181-0 (Version None)
Quarter: 2004Q3

REPORT INFORMATION
  Report Type: 
  Country: None (occurrence: None)
  Receive Date: 20040706
  Receipt Date: 20040625
  Transmission Date: 20050211
  Serious: Yes (Hospitalization)
  Sender: FDA-Public Use
  Company Number: FR-GLAXOSMITHKLINE-B0336948A

PATIENT
  Age: 37 Year
  Sex: Female

DRUGS (5)
  1. TRIZIVIR [Suspect]
     Indication: HIV INFECTION
     Dosage: 2TAB PER DAY
     Route: 048
     Dates: start: 20011107
  2. KALETRA [Suspect]
     Indication: HIV INFECTION
     Dosage: 3UNIT TWICE PER DAY
     Route: 048
     Dates: start: 20011107
  3. VENTOLIN [Concomitant]
     Dosage: 2UNIT PER DAY
     Route: 055
     Dates: start: 20030814
  4. SINGULAIR [Concomitant]
     Dosage: 1TAB PER DAY
     Route: 048
     Dates: start: 20030806
  5. MOPRAL [Concomitant]
     Dosage: 1CAP PER DAY
     Route: 048
     Dates: start: 20030814

REACTIONS (5)
  - FOOT FRACTURE [None]
  - OEDEMA PERIPHERAL [None]
  - OSTEOPENIA [None]
  - PAIN IN EXTREMITY [None]
  - SKIN INFLAMMATION [None]
